FAERS Safety Report 7794353-4 (Version None)
Quarter: 2011Q4

REPORT INFORMATION
  Report Type: 
  Country: None (occurrence: None)
  Receive Date: 20111004
  Receipt Date: 20110928
  Transmission Date: 20120403
  Serious: Yes (Other)
  Sender: FDA-Public Use
  Company Number: CA-PFIZER INC-2011181234

PATIENT
  Sex: Male

DRUGS (2)
  1. IBUPROFEN (ADVIL) [Suspect]
     Indication: BACK PAIN
     Dosage: UNK
     Route: 065
  2. TYLENOL-500 [Suspect]
     Indication: BACK PAIN
     Dosage: UNK
     Route: 065

REACTIONS (3)
  - BONE NEOPLASM MALIGNANT [None]
  - MASS [None]
  - GASTRIC ULCER [None]
